FAERS Safety Report 19429707 (Version 3)
Quarter: 2022Q3

REPORT INFORMATION
  Report Type: Spontaneous
  Country: US (occurrence: US)
  Receive Date: 20210617
  Receipt Date: 20220907
  Transmission Date: 20221026
  Serious: No
  Sender: FDA-Public Use
  Company Number: US-PFIZER INC-2021304552

PATIENT
  Age: 71 Year
  Sex: Female

DRUGS (1)
  1. PREMARIN [Suspect]
     Active Substance: ESTROGENS, CONJUGATED
     Indication: Hysterectomy
     Dosage: 0.625 MG, CYCLIC (DAILY FOR 21 DAYS THEN DO NOT TAKE FOR 7 DAYS)
     Route: 048
     Dates: start: 20220902

REACTIONS (1)
  - Illness [Unknown]
